FAERS Safety Report 9232804 (Version 1)
Quarter: 2013Q2

REPORT INFORMATION
  Report Type: Report from Study
  Country: CA (occurrence: CA)
  Receive Date: 20130416
  Receipt Date: 20130416
  Transmission Date: 20140414
  Serious: Yes (Other)
  Sender: FDA-Public Use
  Company Number: CA-JNJFOC-20130404868

PATIENT
  Age: 26 Year
  Sex: Male
  Weight: 70 kg

DRUGS (3)
  1. REMICADE [Suspect]
     Indication: CROHN^S DISEASE
     Route: 042
     Dates: start: 20111219
  2. CHOLESTYRAMINE [Concomitant]
     Route: 065
  3. IRON [Concomitant]
     Route: 065

REACTIONS (1)
  - Dental prosthesis user [Unknown]
